FAERS Safety Report 9461694 (Version 1)
Quarter: 2013Q3

REPORT INFORMATION
  Report Type: Spontaneous
  Country: US (occurrence: None)
  Receive Date: 20130815
  Receipt Date: 20130815
  Transmission Date: 20140515
  Serious: Yes (Other)
  Sender: FDA-Public Use
  Company Number: None

PATIENT
  Age: 23 Year
  Sex: Female
  Weight: 103.87 kg

DRUGS (1)
  1. CIPROFLOXACIN [Suspect]
     Dates: end: 20130130

REACTIONS (3)
  - Myalgia [None]
  - Arthralgia [None]
  - Pain in jaw [None]
